FAERS Safety Report 6521114-6 (Version None)
Quarter: 2009Q4

REPORT INFORMATION
  Report Type: 
  Country: None (occurrence: None)
  Receive Date: 20091229
  Receipt Date: 20091222
  Transmission Date: 20100525
  Serious: Yes (Other)
  Sender: FDA-Public Use
  Company Number: US-ELI_LILLY_AND_COMPANY-US200908002477

PATIENT
  Age: 98 Year
  Sex: Female

DRUGS (3)
  1. HUMULIN 70/30 [Suspect]
     Indication: DIABETES MELLITUS
     Dosage: UNK, UNK
     Dates: start: 20081201
  2. HUMULIN 70/30 [Suspect]
     Dates: start: 20081201
  3. HUMULIN 70/30 [Suspect]
     Dates: start: 20081201

REACTIONS (1)
  - DEAFNESS [None]
